FAERS Safety Report 6073832-4 (Version None)
Quarter: 2009Q1

REPORT INFORMATION
  Report Type: 
  Country: None (occurrence: None)
  Receive Date: 20090209
  Receipt Date: 20090209
  Transmission Date: 20090719
  Serious: Yes (Hospitalization)
  Sender: FDA-Public Use
  Company Number: None

PATIENT
  Age: 55 Year
  Sex: Male

DRUGS (18)
  1. SEPTRA DS [Suspect]
     Indication: OPPORTUNISTIC INFECTION
     Dosage: 1TABLET BID PO RECENT
     Route: 048
  2. ALTACE [Suspect]
     Indication: HYPERTENSION
     Dosage: 5MG DAILY PO CHRONIC
     Route: 048
  3. M.V.I. [Concomitant]
  4. ASPIRIN [Concomitant]
  5. CRESTOR [Concomitant]
  6. DUONEB [Concomitant]
  7. FERROUS SULFATE TAB [Concomitant]
  8. FORADIL [Concomitant]
  9. LASIX [Concomitant]
  10. POTASSIUM CHLORIDE [Concomitant]
  11. PREDNISONE [Concomitant]
  12. PRILOSEC [Concomitant]
  13. PROCRIT [Concomitant]
  14. PROVENTIL [Concomitant]
  15. STARLIX [Concomitant]
  16. VICODIN [Concomitant]
  17. ZAROXOLYN [Concomitant]
  18. LANTUS [Concomitant]

REACTIONS (7)
  - CONDITION AGGRAVATED [None]
  - DEHYDRATION [None]
  - DIALYSIS [None]
  - HYPERKALAEMIA [None]
  - LUNG DISORDER [None]
  - RENAL FAILURE ACUTE [None]
  - RENAL TUBULAR NECROSIS [None]
